FAERS Safety Report 8604970-7 (Version None)
Quarter: 2012Q3

REPORT INFORMATION
  Report Type: 
  Country: None (occurrence: None)
  Receive Date: 20120820
  Receipt Date: 20120809
  Transmission Date: 20120928
  Serious: No
  Sender: FDA-Public Use
  Company Number: US-BAYER-2012-082032

PATIENT

DRUGS (2)
  1. ALEVE (CAPLET) [Suspect]
     Indication: HEADACHE
     Dosage: 4 TO 6 DF
     Route: 048
  2. IBUPROFEN [Concomitant]
     Dosage: UNK

REACTIONS (1)
  - HEADACHE [None]
